FAERS Safety Report 15155088 (Version 1)
Quarter: 2018Q3

REPORT INFORMATION
  Report Type: Spontaneous
  Country: US (occurrence: US)
  Receive Date: 20180620
  Receipt Date: 20180620
  Transmission Date: 20181010
  Serious: No
  Sender: FDA-Public Use
  Company Number: None

PATIENT
  Sex: Female

DRUGS (1)
  1. HARVONI [Suspect]
     Active Substance: LEDIPASVIR\SOFOSBUVIR
     Indication: HEPATITIS B
     Dosage: ?          OTHER DOSE:90/100MG;?
     Route: 048
     Dates: start: 20180525

REACTIONS (2)
  - Confusional state [None]
  - Feeling abnormal [None]
